FAERS Safety Report 13214138 (Version 1)
Quarter: 2017Q1

REPORT INFORMATION
  Report Type: Spontaneous
  Country: CA (occurrence: CA)
  Receive Date: 20170210
  Receipt Date: 20170210
  Transmission Date: 20170428
  Serious: Yes (Other)
  Sender: FDA-Public Use
  Company Number: CA-PFIZER INC-2017054973

PATIENT
  Sex: Male
  Weight: .92 kg

DRUGS (1)
  1. CHLORAMPHENICOL [Suspect]
     Active Substance: CHLORAMPHENICOL
     Indication: MENINGITIS
     Dosage: 25 MG/KG, DAILY
     Route: 042

REACTIONS (2)
  - Blood pressure decreased [Recovering/Resolving]
  - Pancytopenia [Recovering/Resolving]
